FAERS Safety Report 8814899 (Version 1)
Quarter: 2012Q4

REPORT INFORMATION
  Report Type: 
  Country: US (occurrence: US)
  Receive Date: 20120928
  Receipt Date: 20120928
  Transmission Date: 20130627
  Serious: Yes (Death, Hospitalization)
  Sender: FDA-Public Use
  Company Number: US-ROCHE-1136569

PATIENT
  Age: 45 Year
  Sex: Male

DRUGS (4)
  1. AVASTIN [Suspect]
     Indication: COLON CANCER METASTATIC
     Route: 065
  2. OXALIPLATIN [Concomitant]
     Indication: COLON CANCER METASTATIC
  3. 5-FLUOROURACIL [Concomitant]
     Indication: COLON CANCER METASTATIC
  4. FOLINIC ACID [Concomitant]
     Indication: COLON CANCER METASTATIC

REACTIONS (3)
  - Colon cancer stage IV [Fatal]
  - Anaemia [Fatal]
  - Renal failure acute [Fatal]
